FAERS Safety Report 8108315-0 (Version None)
Quarter: 2012Q1

REPORT INFORMATION
  Report Type: 
  Country: None (occurrence: None)
  Receive Date: 20120202
  Receipt Date: 20120123
  Transmission Date: 20120608
  Serious: Yes (Other)
  Sender: FDA-Public Use
  Company Number: PHHY2012AR006343

PATIENT
  Sex: Male

DRUGS (1)
  1. DIOVAN HCT [Suspect]
     Indication: HYPERTENSION
     Dosage: 320 MG VALSARTAN, 12.5 MG HYDROCHLOROTHIAZIDE, DAILY
     Dates: start: 20080101

REACTIONS (1)
  - MALIGNANT MELANOMA [None]
